FAERS Safety Report 15255644 (Version 1)
Quarter: 2018Q4

REPORT INFORMATION
  Report Type: Spontaneous
  Country: US (occurrence: US)
  Receive Date: 20180808
  Receipt Date: 20180808
  Transmission Date: 20190204
  Serious: Yes (Hospitalization, Other)
  Sender: FDA-Public Use
  Company Number: US-ELI_LILLY_AND_COMPANY-US201808002342

PATIENT
  Sex: Female

DRUGS (1)
  1. ABEMACICLIB 100MG [Suspect]
     Active Substance: ABEMACICLIB
     Indication: BREAST CANCER METASTATIC
     Dosage: 100 MG, BID
     Route: 065
     Dates: start: 20180416

REACTIONS (7)
  - Pruritus generalised [Unknown]
  - Pleural effusion [Unknown]
  - International normalised ratio abnormal [Unknown]
  - Asthenia [Unknown]
  - Insomnia [Unknown]
  - Peripheral swelling [Unknown]
  - Gastrooesophageal reflux disease [Unknown]
